FAERS Safety Report 7943673 (Version 6)
Quarter: 2013Q1

REPORT INFORMATION
  Report Type: Spontaneous
  Country: US (occurrence: US)
  Receive Date: 20110513
  Receipt Date: 20130322
  Transmission Date: 20140127
  Serious: Yes (Hospitalization)
  Sender: FDA-Public Use
  Company Number: US-BAYER-2011-040629

PATIENT
  Age: 31 Year
  Sex: Female
  Weight: 115.65 kg

DRUGS (18)
  1. YAZ [Suspect]
     Indication: MENSTRUATION IRREGULAR
     Dosage: UNK
     Dates: start: 20081117, end: 20090511
  2. YAZ [Suspect]
     Indication: POLYCYSTIC OVARIES
  3. YAZ [Suspect]
     Indication: HIRSUTISM
  4. SPIRONOLACTONE [Concomitant]
     Indication: HIRSUTISM
     Dosage: 200 MG, QD
     Route: 048
     Dates: start: 200811, end: 200906
  5. ATENOLOL [Concomitant]
     Indication: HYPERTENSION
     Dosage: 50 MG, QD
     Route: 048
     Dates: start: 200811, end: 200910
  6. IMITREX [Concomitant]
     Indication: MIGRAINE
     Dosage: UNK UNK, PRN
     Route: 048
     Dates: start: 200811
  7. LEXAPRO [Concomitant]
     Indication: MENTAL DISORDER
     Dosage: 20 MG, QD
     Route: 048
     Dates: start: 200809, end: 200909
  8. METFORMIN [Concomitant]
     Indication: DIABETES MELLITUS
     Dosage: 500 MG, TID
     Route: 048
     Dates: start: 2002, end: 2009
  9. HALDOL [Concomitant]
     Indication: MENTAL DISORDER
     Dosage: UNK
     Route: 048
     Dates: start: 2006, end: 2011
  10. ABILIFY [Concomitant]
     Indication: ANXIETY
     Dosage: 20 MG, QD
     Route: 048
     Dates: start: 2004, end: 2009
  11. HYDROXYZINE PAMOATE [Concomitant]
     Indication: ANXIETY
     Dosage: 100 MG, QD
     Route: 048
     Dates: start: 2008, end: 2009
  12. ALPRAZOLAM [Concomitant]
     Indication: ANXIETY
     Dosage: 0.5 MG, QD
     Route: 048
     Dates: start: 2009
  13. BENTYL [Concomitant]
     Dosage: 20 MG, BID
     Route: 048
  14. NEURONTIN [Concomitant]
  15. VISTARIL [Concomitant]
  16. PROVENTIL [Concomitant]
  17. CEPHALEXIN [Concomitant]
     Dosage: 500 MG, DAILY
  18. FLUCONAZOLE [Concomitant]
     Dosage: 150 MG, UNK
     Route: 048

REACTIONS (7)
  - Pulmonary embolism [None]
  - Dyspnoea [None]
  - Chest pain [None]
  - Pain [None]
  - Menorrhagia [None]
  - Dysmenorrhoea [None]
  - Off label use [None]
